FAERS Safety Report 14586834 (Version 1)
Quarter: 2018Q1

REPORT INFORMATION
  Report Type: Spontaneous
  Country: US (occurrence: US)
  Receive Date: 20180301
  Receipt Date: 20180301
  Transmission Date: 20180509
  Serious: No
  Sender: FDA-Public Use
  Company Number: US-HERON THERAPEUTICS, INC-HRTX-2017-000411

PATIENT
  Age: 46 Year
  Sex: Female
  Weight: 97.96 kg

DRUGS (11)
  1. CLARITIN [Concomitant]
     Active Substance: LORATADINE
     Indication: PRODUCT USED FOR UNKNOWN INDICATION
     Dosage: 10 MG, UNK
     Dates: start: 201704
  2. EMEND [Concomitant]
     Active Substance: APREPITANT
     Indication: BREAST CANCER
     Dosage: 5TH CYCLE DAY 1
     Dates: start: 20170823
  3. FLONASE [Concomitant]
     Active Substance: FLUTICASONE PROPIONATE
     Indication: PRODUCT USED FOR UNKNOWN INDICATION
     Dosage: UNK
     Dates: start: 2017
  4. DECADRON [Concomitant]
     Active Substance: DEXAMETHASONE
     Indication: BREAST CANCER
     Dosage: 5TH CYCLE DAY 1
     Dates: start: 20170823
  5. HYDROCHLOROTHIAZIDE. [Concomitant]
     Active Substance: HYDROCHLOROTHIAZIDE
     Indication: PRODUCT USED FOR UNKNOWN INDICATION
     Dosage: UNK
  6. SUSTOL [Suspect]
     Active Substance: GRANISETRON
     Indication: PROPHYLAXIS OF NAUSEA AND VOMITING
     Dosage: 10 MG/0.4 ML, SINGLE
     Route: 058
     Dates: start: 20170823, end: 20170823
  7. COMPAZINE [Concomitant]
     Active Substance: PROCHLORPERAZINE MALEATE
     Indication: NAUSEA
     Dosage: 10 MG, PRN
  8. ZOFRAN [Concomitant]
     Active Substance: ONDANSETRON HYDROCHLORIDE
     Indication: NAUSEA
     Dosage: 8 MG, PRN
  9. CYTOXAN [Concomitant]
     Active Substance: CYCLOPHOSPHAMIDE
     Indication: BREAST CANCER
     Dosage: 5TH CYCLE DAY 1
     Dates: start: 20170823
  10. METFORMIN [Concomitant]
     Active Substance: METFORMIN HYDROCHLORIDE
     Indication: PRODUCT USED FOR UNKNOWN INDICATION
     Dosage: UNK
  11. LISINOPRIL. [Concomitant]
     Active Substance: LISINOPRIL
     Indication: PRODUCT USED FOR UNKNOWN INDICATION
     Dosage: UNK

REACTIONS (2)
  - Drug administration error [Recovered/Resolved]
  - No adverse event [Unknown]

NARRATIVE: CASE EVENT DATE: 20170823
